FAERS Safety Report 18777838 (Version 2)
Quarter: 2021Q2

REPORT INFORMATION
  Report Type: Spontaneous
  Country: US (occurrence: US)
  Receive Date: 20210122
  Receipt Date: 20210423
  Transmission Date: 20210717
  Serious: No
  Sender: FDA-Public Use
  Company Number: 2020SGN03954

PATIENT
  Sex: Female

DRUGS (1)
  1. TUKYSA [Suspect]
     Active Substance: TUCATINIB
     Indication: BREAST CANCER FEMALE
     Dosage: UNK

REACTIONS (7)
  - Fall [Unknown]
  - Pneumonia [Recovered/Resolved]
  - Adverse drug reaction [Recovered/Resolved]
  - Fatigue [Unknown]
  - Fracture [Recovering/Resolving]
  - Hyperaesthesia [Unknown]
  - Breath sounds abnormal [Recovered/Resolved]
